APPROVED DRUG PRODUCT: AMCINONIDE
Active Ingredient: AMCINONIDE
Strength: 0.1%
Dosage Form/Route: LOTION;TOPICAL
Application: A076329 | Product #001
Applicant: SOLUBIOMIX LLC
Approved: Nov 6, 2002 | RLD: No | RS: Yes | Type: RX